FAERS Safety Report 21979213 (Version 1)
Quarter: 2023Q1

REPORT INFORMATION
  Report Type: Spontaneous
  Country: US (occurrence: None)
  Receive Date: 20230209
  Receipt Date: 20230209
  Transmission Date: 20230417
  Serious: Yes (Other)
  Sender: FDA-Public Use
  Company Number: None

PATIENT
  Age: 59 Year
  Sex: Female
  Weight: 58.5 kg

DRUGS (7)
  1. NALTREXONE HYDROCHLORIDE [Suspect]
     Active Substance: NALTREXONE HYDROCHLORIDE
     Indication: Autoimmune thyroiditis
     Dosage: 90 CAPSULES AT BEDTIME ORAL
     Route: 048
     Dates: start: 20220601, end: 20230209
  2. SYNTHROID [Concomitant]
     Active Substance: LEVOTHYROXINE SODIUM
  3. HYDROXYZINE HYDROCHLORIDE [Concomitant]
     Active Substance: HYDROXYZINE HYDROCHLORIDE
  4. Vitamin d3/vitamin k2 [Concomitant]
  5. Alpla lipoic acid [Concomitant]
  6. PREGNENOLONE [Concomitant]
     Active Substance: PREGNENOLONE
  7. NALTREXONE [Concomitant]
     Active Substance: NALTREXONE

REACTIONS (1)
  - Hallucination, visual [None]

NARRATIVE: CASE EVENT DATE: 20220802
